FAERS Safety Report 14242987 (Version 2)
Quarter: 2017Q4

REPORT INFORMATION
  Report Type: Spontaneous
  Country: JP (occurrence: JP)
  Receive Date: 20171201
  Receipt Date: 20171218
  Transmission Date: 20180321
  Serious: Yes (Other)
  Sender: FDA-Public Use
  Company Number: JP-SA-2017SA235703

PATIENT
  Age: 62 Year
  Sex: Male

DRUGS (4)
  1. LANTUS SOLOSTAR [Suspect]
     Active Substance: INSULIN GLARGINE
     Route: 058
  2. SOLOSTAR [Suspect]
     Active Substance: DEVICE
  3. LANTUS XR [Suspect]
     Active Substance: INSULIN GLARGINE
     Route: 058
  4. SOLOSTAR [Suspect]
     Active Substance: DEVICE

REACTIONS (1)
  - Angina pectoris [Unknown]
